FAERS Safety Report 15499864 (Version 2)
Quarter: 2018Q4

REPORT INFORMATION
  Report Type: Report from Study
  Country: US (occurrence: US)
  Receive Date: 20181015
  Receipt Date: 20181206
  Transmission Date: 20190205
  Serious: Yes (Other)
  Sender: FDA-Public Use
  Company Number: US-GILEAD-2018-0367604

PATIENT
  Age: 74 Year
  Sex: Female

DRUGS (9)
  1. AMBRISENTAN [Suspect]
     Active Substance: AMBRISENTAN
     Indication: PRODUCT USED FOR UNKNOWN INDICATION
     Dosage: 10 MG, QD
     Route: 065
     Dates: start: 20180212
  2. ATENOLOL. [Concomitant]
     Active Substance: ATENOLOL
  3. COUMADIN [Concomitant]
     Active Substance: WARFARIN SODIUM
  4. TRACLEER [Concomitant]
     Active Substance: BOSENTAN
  5. TYVASO [Concomitant]
     Active Substance: TREPROSTINIL
  6. METOPROLOL. [Concomitant]
     Active Substance: METOPROLOL
  7. DILTIAZEM. [Concomitant]
     Active Substance: DILTIAZEM
  8. REVATIO [Concomitant]
     Active Substance: SILDENAFIL CITRATE
  9. REMODULIN [Concomitant]
     Active Substance: TREPROSTINIL

REACTIONS (6)
  - Abdominal distension [Not Recovered/Not Resolved]
  - Presyncope [Not Recovered/Not Resolved]
  - Hypotension [Not Recovered/Not Resolved]
  - Dyspnoea [Unknown]
  - Chemotherapy [Not Recovered/Not Resolved]
  - Dizziness [Not Recovered/Not Resolved]
